FAERS Safety Report 4889794-9 (Version None)
Quarter: 2006Q1

REPORT INFORMATION
  Report Type: 
  Country: None (occurrence: None)
  Receive Date: 20060124
  Receipt Date: 20050930
  Transmission Date: 20060701
  Serious: Yes (Hospitalization, Other)
  Sender: FDA-Public Use
  Company Number: US-MERCK-0510USA01197

PATIENT
  Age: 53 Year
  Sex: Male
  Weight: 110 kg

DRUGS (1)
  1. VIOXX [Suspect]
     Route: 048

REACTIONS (19)
  - ANGINA PECTORIS [None]
  - ANGIOPATHY [None]
  - ARRHYTHMIA [None]
  - ASTHENIA [None]
  - BACK PAIN [None]
  - BUTTOCK PAIN [None]
  - CARDIOVASCULAR DISORDER [None]
  - CEREBROVASCULAR ACCIDENT [None]
  - DIZZINESS [None]
  - DYSAESTHESIA [None]
  - HYPOAESTHESIA [None]
  - MYOCARDIAL INFARCTION [None]
  - ORGAN FAILURE [None]
  - PAIN [None]
  - PAIN IN EXTREMITY [None]
  - PARAESTHESIA [None]
  - PULMONARY EMBOLISM [None]
  - SCIATICA [None]
  - THROMBOSIS [None]
